FAERS Safety Report 16002741 (Version 4)
Quarter: 2021Q3

REPORT INFORMATION
  Report Type: Spontaneous
  Country: US (occurrence: US)
  Receive Date: 20190225
  Receipt Date: 20210819
  Transmission Date: 20211014
  Serious: Yes (Hospitalization)
  Sender: FDA-Public Use
  Company Number: US-SA-2019SA046854

PATIENT
  Age: 65 Year
  Sex: Female

DRUGS (2)
  1. COVID?19 VACCINE NOS. [Suspect]
     Active Substance: COVID-19 VACCINE NOS
  2. AUBAGIO [Suspect]
     Active Substance: TERIFLUNOMIDE
     Indication: MULTIPLE SCLEROSIS
     Dosage: 14 MG, QD
     Route: 048
     Dates: start: 20160907

REACTIONS (4)
  - Blood count abnormal [Unknown]
  - Knee arthroplasty [Unknown]
  - Nasopharyngitis [Unknown]
  - Vomiting [Unknown]

NARRATIVE: CASE EVENT DATE: 2020
